FAERS Safety Report 10172147 (Version 2)
Quarter: 2014Q3

REPORT INFORMATION
  Report Type: Report from Study
  Country: PH (occurrence: PH)
  Receive Date: 20140515
  Receipt Date: 20140721
  Transmission Date: 20150326
  Serious: Yes (Death, Other)
  Sender: FDA-Public Use
  Company Number: PHHY2014PH056737

PATIENT

DRUGS (1)
  1. GLIVEC [Suspect]
     Active Substance: IMATINIB MESYLATE
     Dosage: MATERNAL DOSE: 400 MG
     Route: 064

REACTIONS (3)
  - Stillbirth [Fatal]
  - Foetal exposure during pregnancy [Unknown]
  - Umbilical cord abnormality [Unknown]

NARRATIVE: CASE EVENT DATE: 20140501
